FAERS Safety Report 4657250-9 (Version None)
Quarter: 2005Q2

REPORT INFORMATION
  Report Type: 
  Country: None (occurrence: None)
  Receive Date: 20050506
  Receipt Date: 20050429
  Transmission Date: 20051028
  Serious: Yes (Hospitalization, Other)
  Sender: FDA-Public Use
  Company Number: 163-20785-05010038

PATIENT
  Age: 65 Year
  Sex: Female

DRUGS (1)
  1. THALOMID [Suspect]
     Indication: MULTIPLE MYELOMA
     Dosage: 100 MG, DAILY, ORAL
     Route: 048
     Dates: start: 20040722, end: 20041018

REACTIONS (4)
  - CERVICAL SPINAL STENOSIS [None]
  - NEUROPATHIC PAIN [None]
  - NEUROPATHY [None]
  - SPINAL COMPRESSION FRACTURE [None]
